FAERS Safety Report 20340246 (Version 3)
Quarter: 2023Q1

REPORT INFORMATION
  Report Type: Spontaneous
  Country: US (occurrence: None)
  Receive Date: 20220117
  Receipt Date: 20230324
  Transmission Date: 20230418
  Serious: No
  Sender: FDA-Public Use
  Company Number: 2022A015549

PATIENT
  Age: 811 Month

DRUGS (1)
  1. FASENRA [Suspect]
     Active Substance: BENRALIZUMAB
     Indication: Asthma
     Dosage: 4 WEEKS ON 9/2019 AND BY 12/2019 8 WEEKS
     Route: 058
     Dates: start: 201909

REACTIONS (8)
  - Acquired porokeratosis [Unknown]
  - Infection [Unknown]
  - Oral disorder [Recovering/Resolving]
  - Asthma [Unknown]
  - Granuloma skin [Unknown]
  - Mass [Unknown]
  - Haemorrhage [Unknown]
  - Magnetic resonance imaging head abnormal [Unknown]

NARRATIVE: CASE EVENT DATE: 20190101
